FAERS Safety Report 6669770-6 (Version None)
Quarter: 2010Q2

REPORT INFORMATION
  Report Type: 
  Country: None (occurrence: None)
  Receive Date: 20100402
  Receipt Date: 20100322
  Transmission Date: 20101027
  Serious: Yes (Hospitalization)
  Sender: FDA-Public Use
  Company Number: 1000012784

PATIENT
  Age: 96 Year
  Sex: Female

DRUGS (4)
  1. ESCITALOPRAM [Suspect]
     Dates: end: 20090914
  2. DURAGESIC-100 [Suspect]
     Dates: start: 20090907, end: 20090914
  3. CELEBREX [Suspect]
     Dates: end: 20090914
  4. PIRACETAM [Suspect]
     Dates: end: 20090914

REACTIONS (8)
  - ASTHENIA [None]
  - BLADDER DILATATION [None]
  - GENERAL PHYSICAL HEALTH DETERIORATION [None]
  - PYREXIA [None]
  - RESPIRATORY ACIDOSIS [None]
  - RESPIRATORY DISORDER [None]
  - SOMNOLENCE [None]
  - VITAMIN D DEFICIENCY [None]
